FAERS Safety Report 6844738-5 (Version None)
Quarter: 2010Q3

REPORT INFORMATION
  Report Type: 
  Country: None (occurrence: None)
  Receive Date: 20100715
  Receipt Date: 20100709
  Transmission Date: 20110219
  Serious: Yes (Hospitalization, Other)
  Sender: FDA-Public Use
  Company Number: FR-BRISTOL-MYERS SQUIBB COMPANY-15187115

PATIENT
  Age: 84 Year
  Sex: Female

DRUGS (5)
  1. ECAZIDE [Suspect]
     Dosage: INTERRUPTED ON 23SEP2009 AND RESTARTED ON 29SEP2009.
     Route: 048
  2. DIAMOX SRC [Suspect]
     Route: 048
     Dates: start: 20090901, end: 20090923
  3. LASIX [Suspect]
     Dosage: 1 DF = 1 TAB/DAY. INTERRUPTED ON 23SEP2009 AND RESTARTED ON 29SEP2009.
     Route: 048
  4. CORDARONE [Concomitant]
     Dosage: 1DF:1TAB
  5. PREVISCAN [Concomitant]
     Dosage: 1 DF = 1/2 PER DAY.

REACTIONS (8)
  - ANAEMIA [None]
  - FALL [None]
  - HAEMATOMA [None]
  - HYPONATRAEMIA [None]
  - HYPOTENSION [None]
  - INTERNATIONAL NORMALISED RATIO INCREASED [None]
  - NERVE COMPRESSION [None]
  - RENAL FAILURE ACUTE [None]
